FAERS Safety Report 19431660 (Version 1)
Quarter: 2021Q2

REPORT INFORMATION
  Report Type: Spontaneous
  Country: US (occurrence: US)
  Receive Date: 20210617
  Receipt Date: 20210617
  Transmission Date: 20210717
  Serious: Yes (Hospitalization)
  Sender: FDA-Public Use
  Company Number: US-MYLANLABS-2021M1035248

PATIENT
  Age: 3 Decade
  Sex: Female

DRUGS (1)
  1. TESTOSTERONE. [Suspect]
     Active Substance: TESTOSTERONE
     Indication: GENDER REASSIGNMENT THERAPY
     Dosage: 200 MILLIGRAM, BIMONTHLY
     Route: 030

REACTIONS (2)
  - Spontaneous cerebrospinal fluid leak syndrome [Recovered/Resolved]
  - Idiopathic intracranial hypertension [Recovering/Resolving]
